FAERS Safety Report 10045536 (Version 1)
Quarter: 2014Q1

REPORT INFORMATION
  Report Type: Spontaneous
  Country: US (occurrence: US)
  Receive Date: 20140328
  Receipt Date: 20140328
  Transmission Date: 20141002
  Serious: Yes (Hospitalization)
  Sender: FDA-Public Use
  Company Number: US-FRI-1000065898

PATIENT
  Age: 77 Year
  Sex: Male

DRUGS (8)
  1. NAMENDA XR [Suspect]
     Indication: DEMENTIA ALZHEIMER^S TYPE
     Dosage: 7 MG
     Route: 048
     Dates: start: 20131220, end: 20131226
  2. NAMENDA XR [Suspect]
     Dosage: 14 MG
     Route: 048
     Dates: start: 20131227, end: 20140102
  3. NAMENDA XR [Suspect]
     Dosage: 21 MG
     Route: 048
     Dates: start: 20140103, end: 20140109
  4. NAMENDA XR [Suspect]
     Dosage: 28 MG
     Route: 048
     Dates: start: 20140110
  5. EXELON [Concomitant]
     Indication: DEMENTIA ALZHEIMER^S TYPE
     Dosage: 9.5 MG
     Route: 061
  6. LISINOPRIL [Concomitant]
     Indication: HYPERTENSION
     Dosage: 20 MG
     Route: 048
  7. PRAVASTATIN [Concomitant]
     Dosage: 20 MG
     Route: 048
  8. ASPIRIN [Concomitant]

REACTIONS (5)
  - Diarrhoea [Recovering/Resolving]
  - Dehydration [Recovered/Resolved]
  - Blood pressure decreased [Recovered/Resolved]
  - Fatigue [Not Recovered/Not Resolved]
  - Flatulence [Not Recovered/Not Resolved]
